FAERS Safety Report 13506646 (Version 1)
Quarter: 2017Q2

REPORT INFORMATION
  Report Type: Spontaneous
  Country: US (occurrence: US)
  Receive Date: 20170502
  Receipt Date: 20170502
  Transmission Date: 20170830
  Serious: Yes (Other)
  Sender: FDA-Public Use
  Company Number: US-ROCHE-1287215

PATIENT
  Age: 85 Year
  Sex: Female
  Weight: 49.49 kg

DRUGS (4)
  1. AVASTIN [Suspect]
     Active Substance: BEVACIZUMAB
     Indication: COLORECTAL CANCER METASTATIC
     Route: 042
     Dates: start: 20130911, end: 20131003
  2. LEUCOVORIN. [Concomitant]
     Active Substance: LEUCOVORIN
     Route: 042
     Dates: start: 20130911
  3. FLUOROURACIL. [Suspect]
     Active Substance: FLUOROURACIL
     Indication: COLON CANCER
     Route: 042
     Dates: start: 20130911
  4. PALONOSETRON [Concomitant]
     Active Substance: PALONOSETRON
     Indication: NAUSEA
     Dosage: PRIOR TO 5-FU
     Route: 042
     Dates: start: 20130911

REACTIONS (2)
  - Intestinal perforation [Recovered/Resolved]
  - Gastrointestinal perforation [Unknown]

NARRATIVE: CASE EVENT DATE: 20131003
